FAERS Safety Report 8561002-7 (Version None)
Quarter: 2012Q3

REPORT INFORMATION
  Report Type: 
  Country: None (occurrence: None)
  Receive Date: 20120802
  Receipt Date: 20120611
  Transmission Date: 20120928
  Serious: No
  Sender: FDA-Public Use
  Company Number: US-BRISTOL-MYERS SQUIBB COMPANY-16677551

PATIENT
  Sex: Female

DRUGS (3)
  1. REYATAZ [Suspect]
     Dosage: DOSE:300MG
  2. NORVIR [Suspect]
  3. RALTEGRAVIR [Suspect]

REACTIONS (1)
  - PREGNANCY [None]
